FAERS Safety Report 9102951 (Version 1)
Quarter: 2013Q1

REPORT INFORMATION
  Report Type: Spontaneous
  Country: GB (occurrence: GB)
  Receive Date: 20130218
  Receipt Date: 20130218
  Transmission Date: 20140127
  Serious: Yes (Congenital Anomaly)
  Sender: FDA-Public Use
  Company Number: PHHY2013GB011219

PATIENT
  Sex: Male

DRUGS (11)
  1. HALOPERIDOL [Suspect]
     Route: 064
  2. ISTIN [Suspect]
     Route: 064
  3. DEPIXOL [Suspect]
     Route: 064
  4. DISIPAL [Suspect]
     Route: 064
  5. VALIUM [Suspect]
     Route: 064
  6. RELACTON-C [Suspect]
     Route: 064
  7. KEMADRIN [Suspect]
     Route: 064
  8. NORMAXIN [Suspect]
     Route: 064
  9. SURMONTIL [Suspect]
     Route: 064
  10. SPARINE [Suspect]
     Route: 064
  11. DROLEPTAN [Suspect]
     Route: 064

REACTIONS (3)
  - Respiratory disorder [Unknown]
  - Lymphadenopathy [Unknown]
  - Maternal exposure before pregnancy [Unknown]
